FAERS Safety Report 5734262-5 (Version None)
Quarter: 2008Q2

REPORT INFORMATION
  Report Type: 
  Country: None (occurrence: None)
  Receive Date: 20080512
  Receipt Date: 20080501
  Transmission Date: 20081010
  Serious: Yes (Hospitalization, Other)
  Sender: FDA-Public Use
  Company Number: US-JNJFOC-20080500877

PATIENT
  Sex: Female
  Weight: 52.16 kg

DRUGS (5)
  1. DURAGESIC-100 [Suspect]
     Indication: PAIN
     Route: 062
  2. ATENOLOL [Concomitant]
     Indication: MITRAL VALVE PROLAPSE
     Route: 048
  3. PROMETHAZINE [Concomitant]
     Indication: VOMITING
     Route: 048
  4. PROMETHAZINE [Concomitant]
     Indication: NAUSEA
     Route: 048
  5. ZANTAC [Concomitant]
     Indication: GASTROOESOPHAGEAL REFLUX DISEASE
     Route: 048

REACTIONS (3)
  - ANKLE FRACTURE [None]
  - OSTEOPOROSIS [None]
  - WRONG TECHNIQUE IN DRUG USAGE PROCESS [None]
